FAERS Safety Report 5071363-1 (Version None)
Quarter: 2006Q3

REPORT INFORMATION
  Report Type: 
  Country: None (occurrence: None)
  Receive Date: 20060804
  Receipt Date: 20060208
  Transmission Date: 20061208
  Serious: No
  Sender: FDA-Public Use
  Company Number: US-AMGEN-US168077

PATIENT
  Sex: Male
  Weight: 81.5 kg

DRUGS (17)
  1. ARANESP [Suspect]
     Indication: DIALYSIS
     Route: 042
     Dates: start: 20050301
  2. COZAAR [Suspect]
     Dates: start: 20050315
  3. LISINOPRIL [Suspect]
     Dates: start: 20050315
  4. QUININE SULFATE [Suspect]
     Dates: start: 20050428
  5. ATENOLOL [Concomitant]
     Dates: start: 20050305
  6. CELLCEPT [Concomitant]
     Dates: start: 20050315
  7. LANTUS [Concomitant]
     Dates: start: 20050315
  8. ZEMPLAR [Concomitant]
     Dates: start: 20050711
  9. LOPID [Concomitant]
     Dates: start: 20050315
  10. NEPHRO-CAPS [Concomitant]
     Dates: start: 20050310
  11. NIFEDIPINE [Concomitant]
     Dates: start: 20050315
  12. PHOSLO [Concomitant]
     Dates: start: 20060206
  13. PREDNISONE TAB [Concomitant]
  14. TUMS [Concomitant]
     Dates: start: 20051104
  15. ACETAMINOPHEN [Concomitant]
     Dates: start: 20050515
  16. VENOFER [Concomitant]
  17. MANNITOL [Concomitant]
     Dates: start: 20050307

REACTIONS (3)
  - ANAEMIA [None]
  - HAEMATURIA [None]
  - THERAPEUTIC RESPONSE DECREASED [None]
